FAERS Safety Report 8543935 (Version 2)
Quarter: 2014Q3

REPORT INFORMATION
  Report Type: Spontaneous
  Country: FR (occurrence: FR)
  Receive Date: 20120503
  Receipt Date: 20140723
  Transmission Date: 20150326
  Serious: Yes (Life-Threatening, Hospitalization, Other)
  Sender: FDA-Public Use
  Company Number: FR-PFIZER INC-2012104351

PATIENT
  Age: 68 Year
  Sex: Male

DRUGS (6)
  1. MODOPAR [Concomitant]
     Active Substance: BENSERAZIDE HYDROCHLORIDE\LEVODOPA
     Dosage: UNK
  2. RHINADVIL [Suspect]
     Active Substance: IBUPROFEN\PSEUDOEPHEDRINE HYDROCHLORIDE
     Dosage: UNK FOR 24 HOURS
     Route: 048
     Dates: start: 201202, end: 201202
  3. SOLUPRED [Suspect]
     Active Substance: PREDNISOLONE
     Dosage: 20 MG, TWO DOSE FORMS PER DAY
     Route: 048
     Dates: start: 201202
  4. KARDEGIC [Concomitant]
     Active Substance: ASPIRIN LYSINE
     Dosage: 75 MG
  5. AMLOR [Concomitant]
     Active Substance: AMLODIPINE BESYLATE
     Dosage: 10 MG
  6. PERMIXON [Concomitant]
     Active Substance: SAW PALMETTO
     Dosage: UNK

REACTIONS (4)
  - Lung disorder [Recovered/Resolved]
  - Respiratory distress [Recovering/Resolving]
  - Respiratory acidosis [Recovered/Resolved]
  - Pneumonia [Recovering/Resolving]

NARRATIVE: CASE EVENT DATE: 201202
